FAERS Safety Report 6565946-7 (Version None)
Quarter: 2010Q1

REPORT INFORMATION
  Report Type: 
  Country: None (occurrence: None)
  Receive Date: 20100129
  Receipt Date: 20100129
  Transmission Date: 20100710
  Serious: Yes (Hospitalization)
  Sender: FDA-Public Use
  Company Number: None

PATIENT
  Age: 8 Year
  Sex: Female
  Weight: 28 kg

DRUGS (1)
  1. ALTEPLASE CATHFLO- 2 MG GENENTECH, INC. [Suspect]
     Indication: ANTICOAGULANT THERAPY
     Dosage: UP TO 2 MG PRN IV 3-4 X'S/WEEK AS ANTICOAGU
     Route: 042
     Dates: start: 20091104, end: 20091211

REACTIONS (1)
  - BLOOD PHOSPHORUS INCREASED [None]
